FAERS Safety Report 13537684 (Version 5)
Quarter: 2019Q3

REPORT INFORMATION
  Report Type: Report from Study
  Country: CA (occurrence: CA)
  Receive Date: 20170511
  Receipt Date: 20190904
  Transmission Date: 20191004
  Serious: Yes (Death, Life-Threatening, Hospitalization)
  Sender: FDA-Public Use
  Company Number: CA-ACTELION-A-NJ2017-150225

PATIENT
  Age: 70 Year
  Sex: Female
  Weight: 59.86 kg

DRUGS (15)
  1. COENZYME Q10 [Concomitant]
     Active Substance: UBIDECARENONE
  2. FOLIC ACID. [Concomitant]
     Active Substance: FOLIC ACID
  3. CARIPUL [Suspect]
     Active Substance: EPOPROSTENOL
     Indication: PULMONARY HYPERTENSION
     Dosage: 30000 NG/KG
     Route: 042
     Dates: start: 20150515
  4. OPSUMIT [Suspect]
     Active Substance: MACITENTAN
     Indication: PULMONARY HYPERTENSION
     Dosage: 10 MG, UNK
     Route: 048
     Dates: start: 20160620
  5. MAGNESIUM [Concomitant]
     Active Substance: MAGNESIUM
     Dosage: UNK, PRN
  6. OXYGEN. [Concomitant]
     Active Substance: OXYGEN
  7. CARIPUL [Suspect]
     Active Substance: EPOPROSTENOL
     Dosage: UNK
     Route: 042
  8. L-ARGININE [Concomitant]
     Active Substance: ARGININE
  9. LOSEC [Concomitant]
     Active Substance: OMEPRAZOLE
  10. SILDENAFIL. [Concomitant]
     Active Substance: SILDENAFIL
     Indication: PULMONARY ARTERIAL HYPERTENSION
  11. SPIRONOLACTONE. [Concomitant]
     Active Substance: SPIRONOLACTONE
  12. LASIX [Concomitant]
     Active Substance: FUROSEMIDE
  13. TYLENOL WITH CODEINE [Concomitant]
     Active Substance: ACETAMINOPHEN\CODEINE PHOSPHATE
  14. VOLIBRIS [Concomitant]
     Active Substance: AMBRISENTAN
  15. VITAMIN B [Concomitant]
     Active Substance: VITAMIN B

REACTIONS (11)
  - Thrombosis in device [Unknown]
  - Loss of personal independence in daily activities [Unknown]
  - Oxygen therapy [Unknown]
  - Transient ischaemic attack [Unknown]
  - Malaise [Recovered/Resolved]
  - Device alarm issue [Recovered/Resolved]
  - Terminal state [Unknown]
  - Death [Fatal]
  - Right ventricular failure [Unknown]
  - Hospitalisation [Unknown]
  - Loss of consciousness [Recovered/Resolved]

NARRATIVE: CASE EVENT DATE: 20170502
